FAERS Safety Report 21789476 (Version 1)
Quarter: 2022Q4

REPORT INFORMATION
  Report Type: Report from Study
  Country: US (occurrence: US)
  Receive Date: 20221228
  Receipt Date: 20221228
  Transmission Date: 20230113
  Serious: No
  Sender: FDA-Public Use
  Company Number: US-ABBVIE-4233863

PATIENT
  Sex: Male

DRUGS (1)
  1. HUMIRA [Suspect]
     Active Substance: ADALIMUMAB
     Indication: Uveitis
     Dosage: ALL EVENTS WERE STARTED ON AN UNKNOWN DATE IN 2022
     Route: 058
     Dates: start: 20220819

REACTIONS (5)
  - Rash [Unknown]
  - Weight decreased [Unknown]
  - Chest pain [Unknown]
  - Anxiety [Unknown]
  - Peripheral swelling [Unknown]
